FAERS Safety Report 20336165 (Version 1)
Quarter: 2022Q1

REPORT INFORMATION
  Report Type: Spontaneous
  Country: US (occurrence: None)
  Receive Date: 20220114
  Receipt Date: 20220114
  Transmission Date: 20220423
  Serious: Yes (Hospitalization)
  Sender: FDA-Public Use
  Company Number: None

PATIENT
  Age: 60 Year
  Sex: Male
  Weight: 74 kg

DRUGS (4)
  1. CISPLATIN [Suspect]
     Active Substance: CISPLATIN
     Dates: end: 20190830
  2. FILGRASTIM [Suspect]
     Active Substance: FILGRASTIM
     Dates: end: 20190906
  3. IFOSFAMIDE [Suspect]
     Active Substance: IFOSFAMIDE
     Dates: end: 20190830
  4. TAXOL [Suspect]
     Active Substance: PACLITAXEL
     Dates: end: 20190826

REACTIONS (4)
  - Pancytopenia [None]
  - Pyrexia [None]
  - Oral candidiasis [None]
  - Right ventricular hypertrophy [None]

NARRATIVE: CASE EVENT DATE: 20190904
